FAERS Safety Report 4269662-6 (Version None)
Quarter: 2004Q1

REPORT INFORMATION
  Report Type: 
  Country: None (occurrence: None)
  Receive Date: 20040109
  Receipt Date: 20040105
  Transmission Date: 20041129
  Serious: Yes (Hospitalization)
  Sender: FDA-Public Use
  Company Number: US-JNJFOC-20031105229

PATIENT
  Age: 90 Year
  Sex: Female
  Weight: 45.3597 kg

DRUGS (1)
  1. RISPERDAL [Suspect]
     Indication: AGITATION
     Dosage: 1 MG, 1 IN 1 DAY, ORAL
     Route: 048
     Dates: start: 20020101

REACTIONS (2)
  - APNOEA [None]
  - TONGUE PARALYSIS [None]
